FAERS Safety Report 7372482-7 (Version None)
Quarter: 2011Q1

REPORT INFORMATION
  Report Type: 
  Country: None (occurrence: None)
  Receive Date: 20110324
  Receipt Date: 20110311
  Transmission Date: 20110831
  Serious: Yes (Hospitalization)
  Sender: FDA-Public Use
  Company Number: US-ACTELION-A-NJ2011-46137

PATIENT

DRUGS (2)
  1. VENTAVIS [Suspect]
     Indication: PULMONARY ARTERIAL HYPERTENSION
     Dosage: UNK
     Route: 055
     Dates: start: 20060811
  2. SEROQUEL [Concomitant]

REACTIONS (5)
  - MEMORY IMPAIRMENT [None]
  - ASTHENIA [None]
  - DIARRHOEA [None]
  - UNRESPONSIVE TO STIMULI [None]
  - TREMOR [None]
